FAERS Safety Report 15316785 (Version 2)
Quarter: 2018Q3

REPORT INFORMATION
  Report Type: Spontaneous
  Country: AU (occurrence: AU)
  Receive Date: 20180824
  Receipt Date: 20180909
  Transmission Date: 20181010
  Serious: Yes (Life-Threatening, Other)
  Sender: FDA-Public Use
  Company Number: PHHY2018AU077029

PATIENT
  Sex: Female

DRUGS (1)
  1. METHOTREXATE. [Suspect]
     Active Substance: METHOTREXATE
     Indication: BLOOD IMMUNOGLOBULIN E INCREASED
     Dosage: UNK
     Route: 065

REACTIONS (6)
  - Urticaria [Unknown]
  - Angioedema [Unknown]
  - Eosinophilia [Unknown]
  - Implant site extravasation [Unknown]
  - Chemical poisoning [Unknown]
  - Drug ineffective [Unknown]
